FAERS Safety Report 25262791 (Version 1)
Quarter: 2025Q2

REPORT INFORMATION
  Report Type: Report from Study
  Country: US (occurrence: US)
  Receive Date: 20250502
  Receipt Date: 20250502
  Transmission Date: 20250717
  Serious: Yes (Other)
  Sender: ACADIA PHARMACEUTICALS
  Company Number: US-ACADIA PHARMACEUTICALS INC.-ACA-2025-PIM-005035

PATIENT
  Age: 89 Year
  Sex: Male

DRUGS (43)
  1. NUPLAZID [Suspect]
     Active Substance: PIMAVANSERIN TARTRATE
     Indication: Parkinson^s disease
     Dosage: 34 MILLIGRAM, QD
     Route: 048
     Dates: start: 2024
  2. GAS-X [Concomitant]
     Active Substance: DIMETHICONE
  3. FUROSEMIDE [Concomitant]
     Active Substance: FUROSEMIDE
  4. QUETIAPINE FUMARATE [Concomitant]
     Active Substance: QUETIAPINE FUMARATE
  5. SILDENAFIL CITRATE [Concomitant]
     Active Substance: SILDENAFIL CITRATE
  6. PRAVASTATIN SODIUM [Concomitant]
     Active Substance: PRAVASTATIN SODIUM
  7. PIOGLITAZONE [Concomitant]
     Active Substance: PIOGLITAZONE
  8. CLOPIDOGREL [Concomitant]
     Active Substance: CLOPIDOGREL BISULFATE
  9. CARBIDOPA AND LEVODOPA [Concomitant]
     Active Substance: CARBIDOPA\LEVODOPA
  10. CLEARLAX [Concomitant]
     Active Substance: POLYETHYLENE GLYCOL 3350
  11. TESTOSTERONE CYPIONATE [Concomitant]
     Active Substance: TESTOSTERONE CYPIONATE
  12. CYANOCOBALAMIN [Concomitant]
     Active Substance: CYANOCOBALAMIN
  13. TRIAMCINOLONE [Concomitant]
     Active Substance: TRIAMCINOLONE
  14. OZEMPIC [Concomitant]
     Active Substance: SEMAGLUTIDE
  15. LOSARTAN POTASSIUM [Concomitant]
     Active Substance: LOSARTAN POTASSIUM
  16. ENTACAPONE [Concomitant]
     Active Substance: ENTACAPONE
  17. ACETAMINOPHEN\HYDROCODONE [Concomitant]
     Active Substance: ACETAMINOPHEN\HYDROCODONE
  18. MYRBETRIQ [Concomitant]
     Active Substance: MIRABEGRON
  19. FLUTICASONE [Concomitant]
     Active Substance: FLUTICASONE
  20. DICLOFENAC [Concomitant]
     Active Substance: DICLOFENAC
  21. MECLIZINE HYDROCHLORIDE [Concomitant]
     Active Substance: MECLIZINE HYDROCHLORIDE
  22. MEMANTINE [Concomitant]
     Active Substance: MEMANTINE
  23. JARDIANCE [Concomitant]
     Active Substance: EMPAGLIFLOZIN
  24. TAMSULOSIN [Concomitant]
     Active Substance: TAMSULOSIN
  25. AMANTADINE [Concomitant]
     Active Substance: AMANTADINE
  26. MONTELUKAST [Concomitant]
     Active Substance: MONTELUKAST
  27. CRANBERRY [ASCORBIC ACID;TOCOPHEROL;VACCINIUM MACROCARPON] [Concomitant]
  28. CALCIUM\CHOLECALCIFEROL [Concomitant]
     Active Substance: CALCIUM\CHOLECALCIFEROL
  29. SPIRONOLACTONE [Concomitant]
     Active Substance: SPIRONOLACTONE
  30. FAMOTIDINE [Concomitant]
     Active Substance: FAMOTIDINE
  31. LEVOTHYROXINE SODIUM [Concomitant]
     Active Substance: LEVOTHYROXINE SODIUM
  32. METHOCARBAMOL [Concomitant]
     Active Substance: METHOCARBAMOL
  33. CORICIDIN HBP MAXIMUM STRENGTH FLU [Concomitant]
     Active Substance: ACETAMINOPHEN\CHLORPHENIRAMINE MALEATE\DEXTROMETHORPHAN HYDROBROMIDE
  34. NITROGLYCERIN [Concomitant]
     Active Substance: NITROGLYCERIN
  35. GLIPIZIDE [Concomitant]
     Active Substance: GLIPIZIDE
  36. OMEPRAZOLE [Concomitant]
     Active Substance: OMEPRAZOLE
  37. ONDANSETRON [Concomitant]
     Active Substance: ONDANSETRON
  38. AZELASTINE [Concomitant]
     Active Substance: AZELASTINE
  39. POTASSIUM [Concomitant]
     Active Substance: POTASSIUM
  40. DELSYM [Concomitant]
     Active Substance: DEXTROMETHORPHAN
  41. ROPINIROLE [Concomitant]
     Active Substance: ROPINIROLE
  42. METOPROLOL TARTRATE [Concomitant]
     Active Substance: METOPROLOL TARTRATE
  43. PROBIOTIC 10 [BIFIDOBACTERIUM BIFIDUM;BIFIDOBACTERIUM LACTIS;LACTIPLAN [Concomitant]

REACTIONS (5)
  - Myocardial infarction [Unknown]
  - Cough [Unknown]
  - Joint swelling [Unknown]
  - Cancer surgery [Unknown]
  - Cancer surgery [Unknown]

NARRATIVE: CASE EVENT DATE: 20241201
